FAERS Safety Report 19322142 (Version 19)
Quarter: 2023Q2

REPORT INFORMATION
  Report Type: Report from Study
  Country: CO (occurrence: CO)
  Receive Date: 20210528
  Receipt Date: 20230425
  Transmission Date: 20230721
  Serious: Yes (Hospitalization, Other)
  Sender: FDA-Public Use
  Company Number: CO-TAKEDA-2020TUS041452

PATIENT
  Age: 37 Year
  Sex: Male
  Weight: 63 kg

DRUGS (8)
  1. VEDOLIZUMAB [Suspect]
     Active Substance: VEDOLIZUMAB
     Indication: Colitis ulcerative
     Dosage: 300 MILLIGRAM
     Route: 042
     Dates: start: 20181120
  2. VEDOLIZUMAB [Suspect]
     Active Substance: VEDOLIZUMAB
     Dosage: 300 MILLIGRAM, Q4WEEKS
     Route: 042
  3. VEDOLIZUMAB [Suspect]
     Active Substance: VEDOLIZUMAB
     Dosage: 300 MILLIGRAM
     Route: 042
  4. VEDOLIZUMAB [Suspect]
     Active Substance: VEDOLIZUMAB
     Dosage: 300 MILLIGRAM, Q4WEEKS
     Route: 042
  5. VEDOLIZUMAB [Suspect]
     Active Substance: VEDOLIZUMAB
     Dosage: 300 MILLIGRAM, MONTHLY
     Route: 042
  6. VEDOLIZUMAB [Suspect]
     Active Substance: VEDOLIZUMAB
     Dosage: 300 MILLIGRAM, Q4WEEKS
     Route: 042
     Dates: end: 20230302
  7. VEDOLIZUMAB [Suspect]
     Active Substance: VEDOLIZUMAB
     Dosage: 300 MILLIGRAM
     Route: 042
  8. ACETAMINOPHEN [Concomitant]
     Active Substance: ACETAMINOPHEN
     Indication: Headache
     Dosage: 500 MILLIGRAM

REACTIONS (28)
  - Haemorrhage [Unknown]
  - Appendicitis [Recovering/Resolving]
  - Colitis ulcerative [Recovering/Resolving]
  - Condition aggravated [Not Recovered/Not Resolved]
  - Abdominal pain [Recovering/Resolving]
  - Illness [Unknown]
  - Toothache [Unknown]
  - Frequent bowel movements [Recovering/Resolving]
  - Skin exfoliation [Unknown]
  - Insomnia [Recovering/Resolving]
  - Asthenia [Not Recovered/Not Resolved]
  - Drug ineffective [Unknown]
  - Off label use [Unknown]
  - Chills [Unknown]
  - Headache [Recovering/Resolving]
  - Pyrexia [Unknown]
  - Weight increased [Unknown]
  - Body height increased [Unknown]
  - Abdominal pain lower [Recovering/Resolving]
  - Colitis [Not Recovered/Not Resolved]
  - Malaise [Recovered/Resolved]
  - Weight decreased [Unknown]
  - Diarrhoea [Recovering/Resolving]
  - Body temperature increased [Recovering/Resolving]
  - Dizziness [Not Recovered/Not Resolved]
  - Nasal congestion [Recovered/Resolved]
  - Influenza [Not Recovered/Not Resolved]
  - Nausea [Recovering/Resolving]

NARRATIVE: CASE EVENT DATE: 20200802
